FAERS Safety Report 9891949 (Version 1)
Quarter: 2014Q1

REPORT INFORMATION
  Report Type: Spontaneous
  Country: FR (occurrence: FR)
  Receive Date: 20140212
  Receipt Date: 20140212
  Transmission Date: 20141002
  Serious: Yes (Other)
  Sender: FDA-Public Use
  Company Number: FR-ASTRAZENECA-2014SE08455

PATIENT
  Age: 15231 Day
  Sex: Female

DRUGS (10)
  1. XEROQUEL [Suspect]
     Route: 048
     Dates: start: 20130701, end: 20130717
  2. XEROQUEL [Suspect]
     Route: 048
     Dates: start: 20130717, end: 20130723
  3. XEROQUEL [Suspect]
     Route: 048
     Dates: start: 20130723, end: 20130806
  4. XEROQUEL [Suspect]
     Route: 048
     Dates: start: 20130806
  5. DUROGESIC [Concomitant]
     Route: 062
  6. ANAFRANIL [Concomitant]
     Route: 048
  7. TEMESTA [Concomitant]
     Route: 048
  8. THERALENE [Concomitant]
     Route: 048
  9. ASPEGIC [Concomitant]
     Route: 048
  10. KLIPAL CODEINE [Concomitant]
     Dosage: 300 MG/25 MG ONE DOSAGE FORM FOUR TIMES PER DAY
     Route: 048

REACTIONS (3)
  - Erythema [Recovered/Resolved]
  - Pruritus [Recovered/Resolved]
  - Oedema peripheral [Recovered/Resolved]
